FAERS Safety Report 13914364 (Version 1)
Quarter: 2017Q3

REPORT INFORMATION
  Report Type: Spontaneous
  Country: US (occurrence: US)
  Receive Date: 20170828
  Receipt Date: 20170828
  Transmission Date: 20171127
  Serious: No
  Sender: FDA-Public Use
  Company Number: US-ROCHE-1136552

PATIENT
  Age: 11 Year
  Sex: Female
  Weight: 43 kg

DRUGS (8)
  1. NUTROPIN [Suspect]
     Active Substance: SOMATROPIN
     Route: 065
  2. NUTROPIN [Suspect]
     Active Substance: SOMATROPIN
     Route: 065
  3. NUTROPIN [Suspect]
     Active Substance: SOMATROPIN
     Indication: GROWTH HORMONE DEFICIENCY
     Dosage: 0.3 MG/KG/WEEK
     Route: 058
     Dates: start: 19900811
  4. NUTROPIN [Suspect]
     Active Substance: SOMATROPIN
     Dosage: DOSE PER INJECTION 0.37
     Route: 065
  5. CORTISOL [Concomitant]
     Active Substance: HYDROCORTISONE
     Dosage: 23 MCG/DL
     Route: 065
  6. CORTISOL [Concomitant]
     Active Substance: HYDROCORTISONE
     Dosage: 7.9 MCG/DL
     Route: 065
  7. NUTROPIN [Suspect]
     Active Substance: SOMATROPIN
     Route: 065
  8. CORTISOL [Concomitant]
     Active Substance: HYDROCORTISONE
     Dosage: 22 MCG/DL
     Route: 065

REACTIONS (4)
  - Pallor [Unknown]
  - Malaise [Unknown]
  - Hyperhidrosis [Unknown]
  - Vomiting [Unknown]

NARRATIVE: CASE EVENT DATE: 20000713
